FAERS Safety Report 4715531-4 (Version None)
Quarter: 2005Q3

REPORT INFORMATION
  Report Type: 
  Country: None (occurrence: None)
  Receive Date: 20050718
  Receipt Date: 20050706
  Transmission Date: 20060218
  Serious: Yes (Hospitalization, Disabling, Other)
  Sender: FDA-Public Use
  Company Number: US-JNJFOC-20050200865

PATIENT
  Sex: Female
  Weight: 113.4 kg

DRUGS (20)
  1. REMICADE [Suspect]
     Route: 042
  2. REMICADE [Suspect]
     Route: 042
  3. REMICADE [Suspect]
     Dosage: 5-5 MG/KG
     Route: 042
  4. REMICADE [Suspect]
     Dosage: 5-6 MG/KG
     Route: 042
  5. REMICADE [Suspect]
     Route: 042
  6. REMICADE [Suspect]
     Dosage: 4-5 MG/KG
     Route: 042
  7. REMICADE [Suspect]
     Dosage: 5-6 MG/KG
     Route: 042
  8. REMICADE [Suspect]
     Route: 042
  9. REMICADE [Suspect]
     Route: 042
  10. REMICADE [Suspect]
     Indication: RHEUMATOID ARTHRITIS
     Route: 042
  11. ARAVA [Concomitant]
     Indication: RHEUMATOID ARTHRITIS
  12. AMBIEN [Concomitant]
     Indication: INSOMNIA
     Dosage: AT BEDTIME
  13. SYNTHROID [Concomitant]
     Indication: HYPOTHYROIDISM
  14. CLIMARA [Concomitant]
     Indication: HORMONE REPLACEMENT THERAPY
  15. CELEBREX [Concomitant]
  16. PAMELOR [Concomitant]
  17. ADVAIR DISKUS 100/50 [Concomitant]
  18. ADVAIR DISKUS 100/50 [Concomitant]
  19. ALLEGRA [Concomitant]
     Indication: PREMEDICATION
  20. SOLU-CORTEF [Concomitant]
     Indication: RHEUMATOID ARTHRITIS

REACTIONS (20)
  - ADRENAL INSUFFICIENCY [None]
  - ASTHMA [None]
  - BLOOD PRESSURE INCREASED [None]
  - BRONCHITIS [None]
  - BRONCHOSPASM [None]
  - DEPRESSION [None]
  - HAEMATURIA [None]
  - HISTOPLASMOSIS DISSEMINATED [None]
  - HYPERGLYCAEMIA [None]
  - HYPOTENSION [None]
  - LIPOMA [None]
  - LIVER FUNCTION TEST ABNORMAL [None]
  - MALAISE [None]
  - PHOTOSENSITIVITY REACTION [None]
  - PLEURISY [None]
  - PNEUMONIA [None]
  - SINUSITIS [None]
  - THROMBOCYTOPENIA [None]
  - UPPER RESPIRATORY TRACT INFECTION [None]
  - VIRAL PHARYNGITIS [None]
